FAERS Safety Report 9176800 (Version 1)
Quarter: 2013Q1

REPORT INFORMATION
  Report Type: Spontaneous
  Country: US (occurrence: US)
  Receive Date: 20130321
  Receipt Date: 20130321
  Transmission Date: 20140127
  Serious: Yes (Hospitalization, Other)
  Sender: FDA-Public Use
  Company Number: US-PFIZER INC-2013091208

PATIENT
  Age: 50 Year
  Sex: Female
  Weight: 62.59 kg

DRUGS (10)
  1. PRISTIQ [Suspect]
     Indication: DEPRESSION
     Dosage: 100 MG, 1X/DAY
     Route: 048
  2. ABILIFY [Concomitant]
     Dosage: UNK
  3. TRAZODONE [Concomitant]
     Dosage: UNK
  4. ELAVIL [Concomitant]
     Dosage: UNK
  5. LASIX [Concomitant]
     Dosage: UNK
  6. PRILOSEC [Concomitant]
     Dosage: UNK
  7. MORPHINE [Concomitant]
     Dosage: UNK
  8. NEURONTIN [Concomitant]
     Dosage: UNK
  9. SYMBICORT [Concomitant]
     Dosage: UNK
  10. ALBUTEROL [Concomitant]
     Dosage: UNK

REACTIONS (7)
  - Intestinal obstruction [Unknown]
  - Gastrointestinal bacterial infection [Recovered/Resolved]
  - Apparent death [Recovered/Resolved]
  - Procedural complication [Recovered/Resolved]
  - Wound secretion [Recovered/Resolved]
  - Impaired healing [Recovered/Resolved]
  - Hernia [Recovered/Resolved]
